FAERS Safety Report 13152164 (Version 6)
Quarter: 2017Q2

REPORT INFORMATION
  Report Type: Report from Study
  Country: IL (occurrence: IL)
  Receive Date: 20170125
  Receipt Date: 20170505
  Transmission Date: 20170830
  Serious: Yes (Life-Threatening)
  Sender: FDA-Public Use
  Company Number: IL-EISAI MEDICAL RESEARCH-EC-2017-024185

PATIENT
  Age: 16 Year
  Sex: Male
  Weight: 55.1 kg

DRUGS (4)
  1. FYCOMPA [Interacting]
     Active Substance: PERAMPANEL
     Route: 048
     Dates: start: 20170114, end: 20170114
  2. FYCOMPA [Suspect]
     Active Substance: PERAMPANEL
     Indication: EPILEPSY
     Route: 048
     Dates: start: 20170110, end: 20170113
  3. SULTIAME [Concomitant]
     Active Substance: SULTHIAME
     Indication: EPILEPSY
     Route: 048
     Dates: start: 20150608
  4. HYDANTOIN [Concomitant]
     Active Substance: PHENYTOIN
     Indication: EPILEPSY
     Dates: start: 20101027

REACTIONS (4)
  - Intentional overdose [Recovered/Resolved]
  - Fall [Recovered/Resolved]
  - Device interaction [Recovered/Resolved]
  - Suicide attempt [Recovered/Resolved]

NARRATIVE: CASE EVENT DATE: 20170114
